FAERS Safety Report 7992299-X (Version None)
Quarter: 2011Q4

REPORT INFORMATION
  Report Type: 
  Country: None (occurrence: None)
  Receive Date: 20111219
  Receipt Date: 20110630
  Transmission Date: 20120403
  Serious: No
  Sender: FDA-Public Use
  Company Number: US-ASTRAZENECA-2011SE39332

PATIENT
  Age: 66 Year
  Sex: Male

DRUGS (4)
  1. ANTIHISTAMINES [Concomitant]
  2. CRESTOR [Suspect]
     Indication: BLOOD CHOLESTEROL INCREASED
     Route: 048
     Dates: start: 20110601
  3. CELEXA [Concomitant]
  4. INHALER [Concomitant]

REACTIONS (3)
  - MALAISE [None]
  - ERYTHEMA [None]
  - ASTHENIA [None]
